FAERS Safety Report 5781574-5 (Version None)
Quarter: 2008Q2

REPORT INFORMATION
  Report Type: 
  Country: None (occurrence: None)
  Receive Date: 20080623
  Receipt Date: 20070427
  Transmission Date: 20081010
  Serious: No
  Sender: FDA-Public Use
  Company Number: US-ASTRAZENECA-2007UW08337

PATIENT
  Age: 53 Year
  Sex: Female
  Weight: 69.9 kg

DRUGS (3)
  1. RHINOCORT [Suspect]
     Indication: TINNITUS
     Dosage: ONE SPRAY EACH NOSRIL AM AND PM IN
     Route: 045
     Dates: start: 20070424, end: 20070426
  2. RHINOCORT [Suspect]
     Indication: SINUS CONGESTION
     Dosage: ONE SPRAY EACH NOSRIL AM AND PM IN
     Route: 045
     Dates: start: 20070424, end: 20070426
  3. RHINOCORT [Suspect]
     Indication: HEADACHE
     Dosage: ONE SPRAY EACH NOSRIL AM AND PM IN
     Route: 045
     Dates: start: 20070424, end: 20070426

REACTIONS (3)
  - BRONCHOSPASM [None]
  - DRY THROAT [None]
  - WHEEZING [None]
